FAERS Safety Report 8297957-8 (Version None)
Quarter: 2012Q2

REPORT INFORMATION
  Report Type: 
  Country: None (occurrence: None)
  Receive Date: 20120419
  Receipt Date: 20120416
  Transmission Date: 20120825
  Serious: Yes (Hospitalization)
  Sender: FDA-Public Use
  Company Number: FR-SANOFI-AVENTIS-2012SA026126

PATIENT
  Age: 71 Year
  Sex: Male

DRUGS (18)
  1. MORPHINE [Concomitant]
     Indication: ABDOMINAL PAIN
     Dates: start: 20120314, end: 20120314
  2. REPALYTE GLUCOSE ELECTROLYTE ORAL POWDER [Concomitant]
     Dates: start: 20120314, end: 20120317
  3. EMEND [Concomitant]
     Dates: start: 20120314, end: 20120316
  4. LEUCOVORIN CALCIUM [Concomitant]
     Indication: COLORECTAL CANCER METASTATIC
     Route: 041
     Dates: start: 20120208, end: 20120314
  5. ROCEPHIN [Concomitant]
     Indication: COLORECTAL CANCER METASTATIC
     Dates: start: 20120314, end: 20120315
  6. VOGALENE [Concomitant]
     Dates: start: 20120314, end: 20120316
  7. ACETAMINOPHEN [Concomitant]
     Dates: start: 20120314, end: 20120315
  8. IRINOTECAN HCL [Suspect]
     Route: 041
     Dates: start: 20120208, end: 20120314
  9. ACUPAN [Concomitant]
     Dates: start: 20120314, end: 20120314
  10. FLUOROURACIL [Concomitant]
     Indication: COLORECTAL CANCER METASTATIC
     Route: 041
     Dates: start: 20120208, end: 20120314
  11. ATROPINE [Concomitant]
     Dates: start: 20120314, end: 20120314
  12. SPASFON [Concomitant]
     Dates: start: 20120314, end: 20120316
  13. SOLU-MEDROL [Concomitant]
     Dates: start: 20120314, end: 20120315
  14. SODIUM CHLORIDE [Concomitant]
     Dates: start: 20120314, end: 20120316
  15. ELOXATIN [Suspect]
     Route: 041
     Dates: start: 20120208, end: 20120314
  16. CIPROFLOXACIN HYDROCHLORIDE [Concomitant]
     Indication: COLORECTAL CANCER METASTATIC
     Dates: start: 20120314, end: 20120316
  17. ONDANSETRON [Concomitant]
     Dates: start: 20120314, end: 20120316
  18. XANAX [Concomitant]
     Dates: start: 20120314, end: 20120314

REACTIONS (2)
  - ABDOMINAL PAIN [None]
  - CYTOLYTIC HEPATITIS [None]
